FAERS Safety Report 7036137-0 (Version None)
Quarter: 2010Q4

REPORT INFORMATION
  Report Type: 
  Country: None (occurrence: None)
  Receive Date: 20101008
  Receipt Date: 20100316
  Transmission Date: 20110411
  Serious: No
  Sender: FDA-Public Use
  Company Number: US-BRISTOL-MYERS SQUIBB COMPANY-14967327

PATIENT
  Age: 60 Year
  Sex: Male

DRUGS (1)
  1. IRBESARTAN [Suspect]
     Indication: BLOOD PRESSURE
     Dosage: THEN SWITCHED TO 300 MG.

REACTIONS (2)
  - DRUG INEFFECTIVE [None]
  - HYPERTENSION [None]
